FAERS Safety Report 22285835 (Version 8)
Quarter: 2024Q2

REPORT INFORMATION
  Report Type: Report from Study
  Country: US (occurrence: US)
  Receive Date: 20230504
  Receipt Date: 20240429
  Transmission Date: 20240716
  Serious: No
  Sender: FDA-Public Use
  Company Number: US-002147023-NVSC2023US100179

PATIENT
  Age: 61 Year
  Sex: Female

DRUGS (2)
  1. KESIMPTA [Suspect]
     Active Substance: OFATUMUMAB
     Indication: Product used for unknown indication
     Dosage: 20 MG, QMO
     Route: 058
     Dates: start: 20220420
  2. KESIMPTA [Suspect]
     Active Substance: OFATUMUMAB
     Dosage: UNK
     Route: 065
     Dates: start: 20230417

REACTIONS (6)
  - Feeling abnormal [Recovered/Resolved]
  - Gait disturbance [Recovered/Resolved]
  - Parkinsonian gait [Recovering/Resolving]
  - Fall [Recovering/Resolving]
  - Posterior tibial tendon dysfunction [Recovering/Resolving]
  - Influenza like illness [Recovered/Resolved]

NARRATIVE: CASE EVENT DATE: 20230315
